FAERS Safety Report 10152049 (Version 2)
Quarter: 2014Q2

REPORT INFORMATION
  Report Type: Spontaneous
  Country: US (occurrence: US)
  Receive Date: 20140505
  Receipt Date: 20140505
  Transmission Date: 20141212
  Serious: No
  Sender: FDA-Public Use
  Company Number: US-BRISTOL-MYERS SQUIBB COMPANY-20404182

PATIENT
  Age: 64 Year
  Sex: Female

DRUGS (1)
  1. FARXIGA [Suspect]
     Route: 048
     Dates: start: 20140210

REACTIONS (2)
  - Drug dispensing error [Unknown]
  - Product name confusion [None]
